FAERS Safety Report 5134086-6 (Version None)
Quarter: 2006Q4

REPORT INFORMATION
  Report Type: 
  Country: None (occurrence: None)
  Receive Date: 20061024
  Receipt Date: 20001121
  Transmission Date: 20070319
  Serious: Yes (Life-Threatening, Hospitalization, Disabling)
  Sender: FDA-Public Use
  Company Number: US-ROCHE-249925

PATIENT
  Age: 28 Year
  Sex: Male
  Weight: 97 kg

DRUGS (5)
  1. TAMIFLU [Suspect]
     Dosage: SINGLE DOSE ADMINISTERED
     Route: 048
     Dates: start: 20001118, end: 20001118
  2. ZYLOPRIM [Suspect]
     Indication: GOUT
     Route: 048
     Dates: start: 19991115, end: 20001119
  3. HYZAAR [Suspect]
     Indication: HYPERTENSION
     Route: 048
     Dates: start: 19991115, end: 20001119
  4. NORVASC [Concomitant]
     Indication: HYPERTENSION
     Route: 048
     Dates: start: 19991115, end: 20001119
  5. PREDNISONE TAB [Concomitant]
     Indication: GOUT
     Dosage: REPORTED AS A RECENT SHORT COURSE TAPER
     Dates: end: 20001119

REACTIONS (12)
  - BLOOD CULTURE POSITIVE [None]
  - CORNEAL EPITHELIUM DEFECT [None]
  - DRUG HYPERSENSITIVITY [None]
  - DYSPHAGIA [None]
  - LEUKOPLAKIA [None]
  - OESOPHAGEAL CANDIDIASIS [None]
  - PHOTOPHOBIA [None]
  - PULMONARY OEDEMA [None]
  - RENAL FAILURE [None]
  - SINUS TACHYCARDIA [None]
  - STEVENS-JOHNSON SYNDROME [None]
  - TOXIC EPIDERMAL NECROLYSIS [None]
